FAERS Safety Report 13795858 (Version 6)
Quarter: 2020Q2

REPORT INFORMATION
  Report Type: Report from Study
  Country: AU (occurrence: AU)
  Receive Date: 20170726
  Receipt Date: 20200518
  Transmission Date: 20200713
  Serious: Yes (Other)
  Sender: FDA-Public Use
  Company Number: AU-JNJFOC-20170719980

PATIENT
  Age: 73 Year
  Sex: Female

DRUGS (1)
  1. SIMPONI [Suspect]
     Active Substance: GOLIMUMAB
     Indication: RHEUMATOID ARTHRITIS
     Route: 058
     Dates: start: 20170601, end: 20170801

REACTIONS (7)
  - Lower respiratory tract infection [Recovering/Resolving]
  - Cystitis [Unknown]
  - Ear infection [Not Recovered/Not Resolved]
  - Peripheral swelling [Recovering/Resolving]
  - Adverse drug reaction [Unknown]
  - Rheumatoid arthritis [Not Recovered/Not Resolved]
  - Fall [Unknown]

NARRATIVE: CASE EVENT DATE: 20170618
